FAERS Safety Report 6218674-1 (Version None)
Quarter: 2009Q2

REPORT INFORMATION
  Report Type: 
  Country: None (occurrence: None)
  Receive Date: 20090608
  Receipt Date: 20090528
  Transmission Date: 20091009
  Serious: Yes (Other)
  Sender: FDA-Public Use
  Company Number: GB-PFIZER INC-2009219978

PATIENT
  Age: 49 Year

DRUGS (9)
  1. CHAMPIX [Suspect]
     Indication: SMOKING CESSATION THERAPY
     Dosage: 1 MG, 2X/DAY
     Route: 048
     Dates: start: 20090304, end: 20090421
  2. CAPSAICIN [Concomitant]
     Dosage: UNK
     Route: 061
     Dates: start: 20090409
  3. CO-DYDRAMOL [Concomitant]
     Indication: PAIN IN EXTREMITY
     Dosage: UNK
     Route: 048
     Dates: start: 20050101
  4. CO-DYDRAMOL [Concomitant]
     Indication: BACK PAIN
  5. CO-DYDRAMOL [Concomitant]
     Indication: EPICONDYLITIS
  6. DICLOFENAC SODIUM [Concomitant]
     Indication: PAIN IN EXTREMITY
     Dosage: 50 MG, AS NEEDED
     Route: 048
     Dates: start: 20050101
  7. DICLOFENAC SODIUM [Concomitant]
     Indication: BACK PAIN
  8. DICLOFENAC SODIUM [Concomitant]
     Indication: EPICONDYLITIS
  9. GABAPENTIN [Concomitant]
     Indication: NEURALGIA
     Dosage: 300 MG, 1X/DAY
     Dates: start: 20090409

REACTIONS (2)
  - CRYING [None]
  - PARANOIA [None]
